FAERS Safety Report 8616135-3 (Version None)
Quarter: 2012Q3

REPORT INFORMATION
  Report Type: 
  Country: None (occurrence: None)
  Receive Date: 20120823
  Receipt Date: 20120112
  Transmission Date: 20120928
  Serious: Yes (Hospitalization, Other)
  Sender: FDA-Public Use
  Company Number: US-ROCHE-1101224

PATIENT
  Sex: Female

DRUGS (2)
  1. ACTIVASE [Suspect]
     Indication: ACUTE MYOCARDIAL INFARCTION
     Dates: start: 19951205
  2. LOPRESSOR [Concomitant]

REACTIONS (8)
  - DYSPNOEA [None]
  - DIZZINESS [None]
  - PAIN [None]
  - OEDEMA PERIPHERAL [None]
  - SINUS TACHYCARDIA [None]
  - NAUSEA [None]
  - JOINT SWELLING [None]
  - ERYTHEMA [None]
